FAERS Safety Report 7761569-2 (Version None)
Quarter: 2011Q3

REPORT INFORMATION
  Report Type: 
  Country: None (occurrence: None)
  Receive Date: 20110920
  Receipt Date: 20110909
  Transmission Date: 20111222
  Serious: Yes (Hospitalization, Other)
  Sender: FDA-Public Use
  Company Number: US-EISAI INC-E7273-00253-CLI-US

PATIENT
  Sex: Male
  Weight: 105 kg

DRUGS (1)
  1. TARGRETIN [Suspect]
     Route: 048
     Dates: start: 20110810, end: 20110906

REACTIONS (1)
  - CARDIAC FAILURE CONGESTIVE [None]
